FAERS Safety Report 4761354-X (Version None)
Quarter: 2005Q3

REPORT INFORMATION
  Report Type: 
  Country: None (occurrence: None)
  Receive Date: 20050901
  Receipt Date: 20050818
  Transmission Date: 20060218
  Serious: Yes (Hospitalization)
  Sender: FDA-Public Use
  Company Number: S05-FRA-03158-01

PATIENT
  Age: 92 Year
  Sex: Male

DRUGS (11)
  1. MEMANTINE HCL [Suspect]
     Dates: start: 20050525
  2. KARDEGIC (ACETYLSALICYLATE LYSINE) [Concomitant]
  3. PRAXILENE (NAFTIDROFURYL OXALATE) [Concomitant]
  4. ZOLOFT [Concomitant]
  5. RISPERDAL [Concomitant]
  6. DRIPTANE (OXYBUTYNIN HYDROCHLORIDE) [Concomitant]
  7. LORAZEPAM [Concomitant]
  8. ESBERIVEN [Concomitant]
  9. TRANSULOSE [Concomitant]
  10. EDUCTYL [Concomitant]
  11. METEOSPASMYL [Concomitant]

REACTIONS (3)
  - ANTIBODY TEST POSITIVE [None]
  - DERMATITIS BULLOUS [None]
  - PEMPHIGOID [None]
